FAERS Safety Report 8598206-3 (Version None)
Quarter: 2012Q3

REPORT INFORMATION
  Report Type: 
  Country: None (occurrence: None)
  Receive Date: 20120802
  Receipt Date: 20120719
  Transmission Date: 20120928
  Serious: Yes (Hospitalization, Other)
  Sender: FDA-Public Use
  Company Number: CIP11002317

PATIENT
  Age: 63 Year
  Sex: Female

DRUGS (40)
  1. VIVELLE-DOT [Concomitant]
  2. KLOR-CON [Concomitant]
  3. DEMEROL [Concomitant]
  4. DARVOCET (DEXTROPROPOXYPHENE HYDROCHLORIDE, PARACETAMOL) [Concomitant]
  5. CINNAMON (CINNAMOMUM VERUM) [Concomitant]
  6. FLAXSEED OIL (LINUM USITATISSUMUM SEED OIL) [Concomitant]
  7. MACRODANTIN [Concomitant]
  8. ZETIA [Concomitant]
  9. ANTIBIOTIC [Concomitant]
  10. MACRODANTIN [Concomitant]
  11. BLACK COHOSH (CIMIFIFUGA RACEMOSA ROOT) [Concomitant]
  12. CRESTOR [Concomitant]
  13. LEXAPRO [Concomitant]
  14. DESERIL (METHYSERGIDE) [Concomitant]
  15. CYMBALTA [Concomitant]
  16. VITAMIN B6 [Concomitant]
  17. MICARDIS [Concomitant]
  18. GLUCOSAMINE (GLUCOSAMINE) [Concomitant]
  19. VAGIFEM [Concomitant]
  20. ACIDOPHILUS (LACTOBACILLUS ACIDOPHILUS) [Concomitant]
  21. ALL OTHER THERAPEUTIC PRODUCTS) [Concomitant]
  22. FOLIC ACID [Concomitant]
  23. MOBIC [Concomitant]
  24. CLONAZEPAM [Concomitant]
  25. ASPIRIN [Concomitant]
  26. VITAMINS NOS (VITAMINS NOS) [Concomitant]
  27. ALL OTHER THERAPEUTIC PRODUCTS [Concomitant]
  28. ALL OTHER THERAPEUTIC PRODUCTS [Concomitant]
  29. VITAMIN B12 [Concomitant]
  30. ACTONEL [Suspect]
     Dosage: 35 MG, 1/WEEK, ORAL
     Route: 048
     Dates: start: 20020101, end: 20100101
  31. NIASPAN [Concomitant]
  32. DESYREL [Concomitant]
  33. CITRACAL + D (CALCIUM CITRATE, ERGOCALCIFEROL) [Concomitant]
  34. CRANBERY (VACCINIUM MACROCARPON) [Concomitant]
  35. OXYGEN (OXYGEN) [Concomitant]
  36. PROAIR (FLUTICASONE PROIONATE) [Concomitant]
  37. WELCHOL [Concomitant]
  38. INDERAL [Concomitant]
  39. FUROSEMIDE [Concomitant]
  40. OMEGA-3-ACID ETHYL ESTERS (LOVAZA) [Concomitant]

REACTIONS (14)
  - FOOT FRACTURE [None]
  - NEPHROLITHIASIS [None]
  - TOOTH FRACTURE [None]
  - FALL [None]
  - TENDONITIS [None]
  - MYALGIA [None]
  - VAGINAL INFECTION [None]
  - ATYPICAL FEMUR FRACTURE [None]
  - MIGRAINE [None]
  - PAIN IN EXTREMITY [None]
  - UPPER LIMB FRACTURE [None]
  - STRESS FRACTURE [None]
  - CYSTITIS NONINFECTIVE [None]
  - BALANCE DISORDER [None]
